FAERS Safety Report 17644906 (Version 1)
Quarter: 2020Q2

REPORT INFORMATION
  Report Type: Spontaneous
  Country: US (occurrence: US)
  Receive Date: 20200408
  Receipt Date: 20200408
  Transmission Date: 20200713
  Serious: Yes (Other)
  Sender: FDA-Public Use
  Company Number: US-ASTRAZENECA-2020SE47476

PATIENT
  Sex: Female

DRUGS (1)
  1. SYMBICORT [Suspect]
     Active Substance: BUDESONIDE\FORMOTEROL FUMARATE DIHYDRATE
     Indication: RESPIRATORY DISORDER
     Dosage: NOT USE IT REGULARLY
     Route: 055

REACTIONS (5)
  - Product use issue [Unknown]
  - Ageusia [Unknown]
  - Coronavirus infection [Not Recovered/Not Resolved]
  - Asthenia [Unknown]
  - Anosmia [Unknown]

NARRATIVE: CASE EVENT DATE: 202003
